FAERS Safety Report 20731383 (Version 4)
Quarter: 2023Q1

REPORT INFORMATION
  Report Type: Spontaneous
  Country: JP (occurrence: JP)
  Receive Date: 20220420
  Receipt Date: 20230320
  Transmission Date: 20230417
  Serious: Yes (Hospitalization, Disabling)
  Sender: FDA-Public Use
  Company Number: JP-Eisai-202200573_HAL_P_1

PATIENT
  Age: 62 Year
  Sex: Female
  Weight: 41 kg

DRUGS (9)
  1. HALAVEN [Suspect]
     Active Substance: ERIBULIN MESYLATE
     Indication: Breast cancer
     Route: 042
     Dates: start: 20210426, end: 20210817
  2. HALAVEN [Suspect]
     Active Substance: ERIBULIN MESYLATE
     Route: 042
     Dates: start: 20210818, end: 20211222
  3. HERCEPTIN [Concomitant]
     Active Substance: TRASTUZUMAB
     Indication: Breast cancer
     Route: 041
     Dates: start: 201909, end: 202003
  4. HERCEPTIN [Concomitant]
     Active Substance: TRASTUZUMAB
     Dosage: DOSE AND FREQUENCY UNKNOWN
     Route: 041
     Dates: start: 202006, end: 202101
  5. HERCEPTIN [Concomitant]
     Active Substance: TRASTUZUMAB
     Route: 041
     Dates: start: 20210426, end: 20211222
  6. PERJETA [Concomitant]
     Active Substance: PERTUZUMAB
     Indication: Breast cancer
     Dosage: DOSE AND FREQUENCY UNKNOWN
     Route: 041
     Dates: start: 201909, end: 202003
  7. PERJETA [Concomitant]
     Active Substance: PERTUZUMAB
     Dosage: DOSE AND FREQUENCY UNKNOWN
     Route: 041
     Dates: start: 202006, end: 202101
  8. PERJETA [Concomitant]
     Active Substance: PERTUZUMAB
     Route: 041
     Dates: start: 20210426, end: 20211222
  9. DIOVAN [Concomitant]
     Active Substance: VALSARTAN
     Indication: Hypertension
     Route: 048
     Dates: start: 20210426, end: 20220413

REACTIONS (1)
  - Interstitial lung disease [Recovered/Resolved with Sequelae]

NARRATIVE: CASE EVENT DATE: 20211222
